FAERS Safety Report 5098657-8 (Version None)
Quarter: 2006Q3

REPORT INFORMATION
  Report Type: 
  Country: None (occurrence: None)
  Receive Date: 20060907
  Receipt Date: 20060828
  Transmission Date: 20061208
  Serious: Yes (Life-Threatening, Hospitalization, Other)
  Sender: FDA-Public Use
  Company Number: JP-JNJFOC-20060402076

PATIENT
  Sex: Male

DRUGS (8)
  1. RISPERIDONE [Suspect]
     Indication: PSYCHOTIC DISORDER
     Route: 015
  2. RISPERDAL [Suspect]
     Indication: PSYCHOMOTOR HYPERACTIVITY
     Route: 015
  3. TEGRETOL [Suspect]
     Indication: PSYCHOMOTOR HYPERACTIVITY
     Route: 015
  4. HIRNAMIN [Suspect]
     Indication: PSYCHOMOTOR HYPERACTIVITY
     Route: 015
  5. FLUNITRAZEPAM [Suspect]
     Indication: DRUG USE FOR UNKNOWN INDICATION
     Route: 015
  6. BIPERIDEN HYDROCHLORIDE TAB [Suspect]
     Indication: DRUG USE FOR UNKNOWN INDICATION
     Route: 015
  7. PURSENNID [Concomitant]
     Indication: CONSTIPATION
  8. KAMAG G [Concomitant]
     Indication: CONSTIPATION

REACTIONS (9)
  - APGAR SCORE LOW [None]
  - CAESAREAN SECTION [None]
  - DRUG EXPOSURE DURING PREGNANCY [None]
  - DRUG WITHDRAWAL SYNDROME NEONATAL [None]
  - HYPOVENTILATION [None]
  - OXYGEN SATURATION DECREASED [None]
  - PSYCHOMOTOR HYPERACTIVITY [None]
  - TACHYPNOEA [None]
  - TREMOR NEONATAL [None]
